FAERS Safety Report 20993137 (Version 1)
Quarter: 2022Q2

REPORT INFORMATION
  Report Type: Spontaneous
  Country: IN (occurrence: IN)
  Receive Date: 20220622
  Receipt Date: 20220622
  Transmission Date: 20220720
  Serious: Yes (Other)
  Sender: FDA-Public Use
  Company Number: IN-PFIZER INC-PV202200001422

PATIENT
  Age: 69 Year
  Sex: Male

DRUGS (1)
  1. TOFACITINIB CITRATE [Suspect]
     Active Substance: TOFACITINIB CITRATE
     Indication: Chronic actinic dermatitis
     Dosage: 5 MG, 2X/DAY
     Route: 048

REACTIONS (2)
  - Anal abscess [Recovering/Resolving]
  - Off label use [Unknown]
